FAERS Safety Report 5025131-7 (Version None)
Quarter: 2006Q2

REPORT INFORMATION
  Report Type: 
  Country: None (occurrence: None)
  Receive Date: 20060426
  Receipt Date: 20060124
  Transmission Date: 20061013
  Serious: Yes (Other)
  Sender: FDA-Public Use
  Company Number: 2006013111

PATIENT
  Sex: Female
  Weight: 68.0396 kg

DRUGS (4)
  1. LYRICA [Suspect]
     Indication: PERIPHERAL SENSORY NEUROPATHY
     Dosage: ORAL
     Route: 048
     Dates: start: 20060119
  2. NEURONTIN [Suspect]
     Indication: PERIPHERAL SENSORY NEUROPATHY
     Dosage: 2400 MG (800 MG 3 IN 1 D) ORAL
     Route: 048
     Dates: end: 20060101
  3. ADVIL [Concomitant]
  4. VITAMINS (VITAMINS) [Concomitant]

REACTIONS (8)
  - DRUG INTERACTION [None]
  - DRY EYE [None]
  - HEADACHE [None]
  - INSOMNIA [None]
  - NIGHT SWEATS [None]
  - NIGHTMARE [None]
  - PAIN [None]
  - VISION BLURRED [None]
